FAERS Safety Report 6964861-4 (Version None)
Quarter: 2010Q3

REPORT INFORMATION
  Report Type: 
  Country: None (occurrence: None)
  Receive Date: 20100901
  Receipt Date: 20100819
  Transmission Date: 20110219
  Serious: Yes (Hospitalization, Other)
  Sender: FDA-Public Use
  Company Number: 2009AC000043

PATIENT
  Age: 77 Year
  Sex: Male
  Weight: 91 kg

DRUGS (94)
  1. DIGOXIN [Suspect]
     Dosage: 0.125 MG; QD; PO
     Route: 048
  2. DIGOXIN [Suspect]
     Dosage: 125 MCG; PO
     Route: 048
     Dates: start: 20050701
  3. DIGOXIN [Suspect]
     Dosage: PO
     Route: 048
     Dates: start: 20000801, end: 20071201
  4. ZOCOR [Concomitant]
  5. COUMADIN [Concomitant]
  6. CEPHULAC [Concomitant]
  7. MAGNESIUM [Concomitant]
  8. AMIODARONE HCL [Concomitant]
  9. ASPIRIN [Concomitant]
  10. PEPCID [Concomitant]
  11. HALDOL [Concomitant]
  12. PROBENECID [Concomitant]
  13. JANUVIA [Concomitant]
  14. GLIMEPIRIDE [Concomitant]
  15. DOCUSATE [Concomitant]
  16. COZAAR [Concomitant]
  17. COREG [Concomitant]
  18. DOXAZOSIN MESYLATE [Concomitant]
  19. SLOW-MAGNESIUM [Concomitant]
  20. ZAROXOLYN [Concomitant]
  21. SYSTANE EYE DROPS [Concomitant]
  22. KIONEX [Concomitant]
  23. AMOX TR-POTASSIUM [Concomitant]
  24. PROBENECID [Concomitant]
  25. DOXAZOSIN MESYLATE [Concomitant]
  26. OMEPRAZOLE [Concomitant]
  27. FUROSEMIDE [Concomitant]
  28. FLOMAX [Concomitant]
  29. SIMVASTATIN [Concomitant]
  30. CARVEDILOL [Concomitant]
  31. JANUVIA [Concomitant]
  32. ALLOPURINOL [Concomitant]
  33. AMLODIPINE [Concomitant]
  34. MIDODRINE HYDROCHLORIDE [Concomitant]
  35. METOLAZONE [Concomitant]
  36. MUPIROCIN [Concomitant]
  37. PANTOPRAZOLE [Concomitant]
  38. FLUDROCORTISONE [Concomitant]
  39. TRICOR [Concomitant]
  40. CRESTOR [Concomitant]
  41. CALCITRIOL [Concomitant]
  42. NYSTATIN [Concomitant]
  43. PROTONIX [Concomitant]
  44. RIFAMPIN [Concomitant]
  45. AVELOX [Concomitant]
  46. BYETTA [Concomitant]
  47. ACTOS [Concomitant]
  48. ALTABAX [Concomitant]
  49. COREG [Concomitant]
  50. ENABLEX [Concomitant]
  51. OMACOR [Concomitant]
  52. NIASPAN [Concomitant]
  53. HYZAAR [Concomitant]
  54. AVANDARYL [Concomitant]
  55. EPOGEN [Concomitant]
  56. LAMISIL [Concomitant]
  57. PENLAC [Concomitant]
  58. METFORMIN HCL [Concomitant]
  59. QUINAPRIL HCL [Concomitant]
  60. NOVOLOG MIX 70/30 [Concomitant]
  61. ACTONEL [Concomitant]
  62. PERCOCET [Concomitant]
  63. ALLOPURINOL [Concomitant]
  64. COLACE [Concomitant]
  65. CARVEDILIL [Concomitant]
  66. DOXAZOSIN MESYLATE [Concomitant]
  67. ESOMEPRAZOLE MAGNESIUM [Concomitant]
  68. GLUCAGON [Concomitant]
  69. HEPARIN [Concomitant]
  70. INSULIN [Concomitant]
  71. ZOFRAN [Concomitant]
  72. SIMVASTATIN [Concomitant]
  73. TIGECYCLINE [Concomitant]
  74. SITAGLIPTIN [Concomitant]
  75. FERROUS SULFATE [Concomitant]
  76. FLOMAX [Concomitant]
  77. PROBENACID [Concomitant]
  78. SLOW-MAGNESIUM [Concomitant]
  79. FUROSEMIDE [Concomitant]
  80. PROTONIX [Concomitant]
  81. COREG [Concomitant]
  82. AMLODIPINE [Concomitant]
  83. CLIMEPIRIDE [Concomitant]
  84. JANUVIA [Concomitant]
  85. AVANDARYL [Concomitant]
  86. EPOGEN [Concomitant]
  87. VYTORIN [Concomitant]
  88. FOLIC ACID [Concomitant]
  89. NORVASC [Concomitant]
  90. TRICOR [Concomitant]
  91. FLOMAX [Concomitant]
  92. PROBENECID [Concomitant]
  93. MAGNESIUM [Concomitant]
  94. NEXIUM [Concomitant]

REACTIONS (64)
  - ABDOMINAL PAIN [None]
  - ACUTE LUNG INJURY [None]
  - ANAEMIA [None]
  - ANGINA PECTORIS [None]
  - ANXIETY [None]
  - ARRHYTHMIA [None]
  - ASTHENIA [None]
  - ATRIAL FIBRILLATION [None]
  - AZOTAEMIA [None]
  - BLOOD GLUCOSE INCREASED [None]
  - BRADYCARDIA [None]
  - CARDIAC FAILURE CONGESTIVE [None]
  - CAROTID ARTERIOSCLEROSIS [None]
  - CHOLECYSTITIS ACUTE [None]
  - CHOLELITHIASIS [None]
  - CORONARY ARTERY DISEASE [None]
  - CORONARY ARTERY INSUFFICIENCY [None]
  - DEEP VEIN THROMBOSIS [None]
  - DEHYDRATION [None]
  - DEPRESSION [None]
  - DIZZINESS [None]
  - DYSPEPSIA [None]
  - ECONOMIC PROBLEM [None]
  - ELECTROCARDIOGRAM ABNORMAL [None]
  - EMOTIONAL DISORDER [None]
  - FALL [None]
  - FEMORAL ARTERY OCCLUSION [None]
  - FLUID OVERLOAD [None]
  - GALLBLADDER FISTULA [None]
  - HAEMATOCRIT DECREASED [None]
  - HYPERKALAEMIA [None]
  - HYPERTENSION [None]
  - HYPOGLYCAEMIA [None]
  - LETHARGY [None]
  - LIMB INJURY [None]
  - LIVER FUNCTION TEST ABNORMAL [None]
  - LOSS OF CONSCIOUSNESS [None]
  - MALIGNANT HYPERTENSION [None]
  - MENTAL DISORDER [None]
  - METABOLIC ACIDOSIS [None]
  - MULTIPLE INJURIES [None]
  - NAUSEA [None]
  - NEAR DROWNING [None]
  - NEPHROSCLEROSIS [None]
  - OEDEMA PERIPHERAL [None]
  - OSTEOMYELITIS [None]
  - PAIN [None]
  - PEPTIC ULCER [None]
  - PERIPHERAL ARTERIAL OCCLUSIVE DISEASE [None]
  - PNEUMONIA [None]
  - PROTEINURIA [None]
  - PULMONARY CONGESTION [None]
  - RENAL FAILURE [None]
  - RENAL FAILURE CHRONIC [None]
  - RETINAL ARTERY THROMBOSIS [None]
  - RETINAL HAEMORRHAGE [None]
  - RIB FRACTURE [None]
  - SEPSIS [None]
  - SINUSITIS [None]
  - SYNCOPE [None]
  - TOE AMPUTATION [None]
  - TRANSIENT ISCHAEMIC ATTACK [None]
  - ULCER HAEMORRHAGE [None]
  - WEIGHT DECREASED [None]
